FAERS Safety Report 5390370-2 (Version None)
Quarter: 2007Q3

REPORT INFORMATION
  Report Type: 
  Country: None (occurrence: None)
  Receive Date: 20070718
  Receipt Date: 20070711
  Transmission Date: 20080115
  Serious: Yes (Hospitalization, Disabling)
  Sender: FDA-Public Use
  Company Number: PL-SANOFI-SYNTHELABO-D01200701491

PATIENT
  Sex: Male
  Weight: 97 kg

DRUGS (14)
  1. SETRON [Concomitant]
  2. PROMETAZIN [Concomitant]
  3. METOCLOPRAMIDE HYDROCHLORIDE [Concomitant]
  4. AMLODIPINE [Concomitant]
  5. DOXAZOSIN MESYLATE [Concomitant]
  6. SIMVASTATIN [Concomitant]
  7. METOPROLOL TARTRATE [Concomitant]
  8. PERINDOPRIL [Concomitant]
  9. ISOSORBIDE DINITRATE [Concomitant]
  10. FLUOROURACIL [Suspect]
     Dosage: 400 MG/M?, IV BOLUS D1+D2 FOLLOWED BY 5-FU 2400 MG/M? OVER 46-HOUR CONTINUOUS INFUSION.
     Route: 042
     Dates: start: 20070227, end: 20070227
  11. OXALIPLATIN [Suspect]
     Route: 042
     Dates: start: 20070227, end: 20070227
  12. SR57746 OR PLACEBO [Suspect]
     Indication: NEUROLOGICAL SYMPTOM
     Route: 048
     Dates: start: 20060926, end: 20070301
  13. FINASTERIDE [Concomitant]
  14. LEUCOVORIN CALCIUM [Suspect]
     Route: 042
     Dates: start: 20070227, end: 20070227

REACTIONS (1)
  - TRANSIENT ISCHAEMIC ATTACK [None]
